FAERS Safety Report 9702065 (Version 1)
Quarter: 2013Q4

REPORT INFORMATION
  Report Type: Spontaneous
  Country: US (occurrence: US)
  Receive Date: 20131121
  Receipt Date: 20131121
  Transmission Date: 20140711
  Serious: No
  Sender: FDA-Public Use
  Company Number: US-GILEAD-2013-0088042

PATIENT
  Age: 54 Year
  Sex: Female

DRUGS (11)
  1. RANEXA [Suspect]
     Indication: ANGINA PECTORIS
     Dosage: 1000 MG, BID
     Route: 048
     Dates: start: 201308, end: 201308
  2. RANEXA [Suspect]
     Dosage: 1000 MG, BID
     Dates: start: 201311, end: 201311
  3. METFORMIN [Concomitant]
     Indication: DIABETES MELLITUS
     Dosage: UNK
  4. PERCOCET                           /00867901/ [Concomitant]
     Indication: LOCAL SWELLING
     Dosage: UNK
  5. LASIX                              /00032601/ [Concomitant]
     Indication: LOCAL SWELLING
     Dosage: UNK
  6. LIPITOR [Concomitant]
     Indication: BLOOD CHOLESTEROL INCREASED
     Dosage: UNK
  7. DIGOXIN [Concomitant]
     Indication: CARDIAC FAILURE CONGESTIVE
     Dosage: UNK
  8. COREG [Concomitant]
     Indication: CARDIAC FAILURE CONGESTIVE
     Dosage: UNK
  9. WARFARIN [Concomitant]
     Indication: CARDIAC FAILURE CONGESTIVE
     Dosage: UNK
  10. VENTOLIN                           /00139501/ [Concomitant]
     Indication: DYSPNOEA
     Dosage: UNK
  11. BIDIL [Concomitant]
     Indication: HYPERTENSION
     Dosage: UNK

REACTIONS (4)
  - Somnolence [Recovered/Resolved]
  - Pain [Recovered/Resolved]
  - Nausea [Recovered/Resolved]
  - Vomiting [Recovered/Resolved]
